FAERS Safety Report 22057422 (Version 1)
Quarter: 2023Q1

REPORT INFORMATION
  Report Type: Spontaneous
  Country: US (occurrence: US)
  Receive Date: 20230303
  Receipt Date: 20230303
  Transmission Date: 20230418
  Serious: No
  Sender: FDA-Public Use
  Company Number: US-Blueprint Medicines Corporation-SP-US-2023-000420

PATIENT
  Sex: Male

DRUGS (1)
  1. AYVAKIT [Suspect]
     Active Substance: AVAPRITINIB
     Indication: Gastrointestinal stromal tumour
     Route: 065

REACTIONS (11)
  - Memory impairment [Unknown]
  - Swelling face [Unknown]
  - Peripheral swelling [Unknown]
  - Fatigue [Unknown]
  - Muscular weakness [Unknown]
  - Lacrimation increased [Unknown]
  - Tremor [Unknown]
  - Nervousness [Unknown]
  - Tinnitus [Unknown]
  - Feeling cold [Unknown]
  - Chills [Unknown]
